FAERS Safety Report 23551480 (Version 2)
Quarter: 2024Q1

REPORT INFORMATION
  Report Type: Report from Study
  Country: US (occurrence: US)
  Receive Date: 20240222
  Receipt Date: 20240319
  Transmission Date: 20240410
  Serious: Yes (Other)
  Sender: FDA-Public Use
  Company Number: US-JNJFOC-20240256973

PATIENT
  Age: 71 Year
  Sex: Male

DRUGS (2)
  1. ERLEADA [Suspect]
     Active Substance: APALUTAMIDE
     Indication: Prostate cancer
     Route: 048
  2. ERLEADA [Suspect]
     Active Substance: APALUTAMIDE
     Dosage: DAILY
     Route: 048
     Dates: start: 20240219

REACTIONS (8)
  - Product dose omission issue [Unknown]
  - Fatigue [Unknown]
  - Loss of libido [Unknown]
  - Penile size reduced [Unknown]
  - Weight increased [Unknown]
  - Alopecia [Unknown]
  - Gynaecomastia [Unknown]
  - Off label use [Unknown]

NARRATIVE: CASE EVENT DATE: 20240219
